FAERS Safety Report 10239331 (Version 1)
Quarter: 2014Q2

REPORT INFORMATION
  Report Type: Other
  Country: JP (occurrence: JP)
  Receive Date: 20140616
  Receipt Date: 20140616
  Transmission Date: 20141212
  Serious: Yes (Hospitalization, Other)
  Sender: FDA-Public Use
  Company Number: JP-BRISTOL-MYERS SQUIBB COMPANY-21013859

PATIENT
  Age: 38 Year
  Sex: Male

DRUGS (3)
  1. METGLUCO [Suspect]
     Dosage: ORAL,1500MG.
     Route: 048
  2. MELBIN [Suspect]
     Route: 048
  3. GLIBENCLAMIDE [Concomitant]

REACTIONS (6)
  - Renal failure acute [Recovering/Resolving]
  - Blood glucose increased [Recovering/Resolving]
  - Suicide attempt [Unknown]
  - Nausea [Not Recovered/Not Resolved]
  - Vomiting [Not Recovered/Not Resolved]
  - Intentional overdose [Unknown]
